FAERS Safety Report 5368050-9 (Version None)
Quarter: 2007Q2

REPORT INFORMATION
  Report Type: 
  Country: None (occurrence: None)
  Receive Date: 20070622
  Receipt Date: 20070612
  Transmission Date: 20071010
  Serious: Yes (Other)
  Sender: FDA-Public Use
  Company Number: US-PFIZER INC-2007048982

PATIENT
  Sex: Male
  Weight: 63.636 kg

DRUGS (12)
  1. CHANTIX [Suspect]
     Indication: EX-SMOKER
     Dosage: TEXT:EVERY DAY
  2. ROCEPHIN [Concomitant]
  3. DAYPRO [Concomitant]
  4. HYDROCORT [Concomitant]
  5. BIAXIN [Concomitant]
  6. BUSPAR [Concomitant]
  7. CLONAZEPAM [Concomitant]
  8. NEXIUM [Concomitant]
  9. MOTILIUM ^JANSSEN^ [Concomitant]
  10. VITAMIN CAP [Concomitant]
  11. STOOL SOFTENER [Concomitant]
  12. HUMALOG [Concomitant]

REACTIONS (8)
  - BLOOD CREATININE INCREASED [None]
  - BLOOD GLUCOSE INCREASED [None]
  - BLOOD UREA INCREASED [None]
  - DEHYDRATION [None]
  - FULL BLOOD COUNT ABNORMAL [None]
  - HEPATIC ENZYME ABNORMAL [None]
  - RENAL IMPAIRMENT [None]
  - TONGUE DISORDER [None]
